FAERS Safety Report 19227857 (Version 2)
Quarter: 2021Q3

REPORT INFORMATION
  Report Type: Spontaneous
  Country: US (occurrence: US)
  Receive Date: 20210506
  Receipt Date: 20210709
  Transmission Date: 20211014
  Serious: No
  Sender: FDA-Public Use
  Company Number: US-MYLANLABS-2021M1024607

PATIENT
  Sex: Female
  Weight: 57 kg

DRUGS (3)
  1. SCOPOLAMINE TRANSDERMAL SYSTEM [Suspect]
     Active Substance: SCOPOLAMINE
     Indication: NAUSEA
  2. SCOPOLAMINE TRANSDERMAL SYSTEM [Suspect]
     Active Substance: SCOPOLAMINE
     Indication: HYPERHIDROSIS
     Dosage: 1 MILLIGRAM, Q3D
     Route: 062
  3. SCOPOLAMINE TRANSDERMAL SYSTEM [Suspect]
     Active Substance: SCOPOLAMINE
     Indication: MOTION SICKNESS

REACTIONS (3)
  - Off label use [Unknown]
  - Product adhesion issue [Unknown]
  - Product quality issue [Unknown]
